FAERS Safety Report 26181474 (Version 1)
Quarter: 2025Q4

REPORT INFORMATION
  Report Type: Spontaneous
  Country: US (occurrence: US)
  Receive Date: 20251221
  Receipt Date: 20251221
  Transmission Date: 20260118
  Serious: No
  Sender: HONG KONG KING-FRIEND INDUSTRIAL COMPANY LIMITED
  Company Number: US-HONGKONGKING-2025MPSPO00426

PATIENT
  Sex: Female

DRUGS (1)
  1. YUSIMRY [Suspect]
     Active Substance: ADALIMUMAB-AQVH
     Indication: Product used for unknown indication
     Route: 065

REACTIONS (3)
  - Incorrect dose administered [Unknown]
  - Device safety feature issue [Unknown]
  - Device leakage [Unknown]
